FAERS Safety Report 13008220 (Version 1)
Quarter: 2016Q4

REPORT INFORMATION
  Report Type: Spontaneous
  Country: US (occurrence: US)
  Receive Date: 20161208
  Receipt Date: 20161208
  Transmission Date: 20170207
  Serious: No
  Sender: FDA-Public Use
  Company Number: US-LUPIN PHARMACEUTICALS INC.-2016-05150

PATIENT
  Sex: Female

DRUGS (2)
  1. LEVETIRACETAM TABLETS USP 500MG [Suspect]
     Active Substance: LEVETIRACETAM
     Route: 065
     Dates: start: 201604
  2. LEVETIRACETAM TABLETS USP 500MG [Suspect]
     Active Substance: LEVETIRACETAM
     Indication: GENERALISED TONIC-CLONIC SEIZURE
     Route: 065
     Dates: start: 201511, end: 201604

REACTIONS (5)
  - Neuropathy peripheral [Not Recovered/Not Resolved]
  - Mouth ulceration [Not Recovered/Not Resolved]
  - Concussion [Unknown]
  - Fall [Unknown]
  - Fatigue [Not Recovered/Not Resolved]
